FAERS Safety Report 10305381 (Version 1)
Quarter: 2014Q3

REPORT INFORMATION
  Report Type: Spontaneous
  Country: TH (occurrence: TH)
  Receive Date: 20140715
  Receipt Date: 20140715
  Transmission Date: 20150326
  Serious: Yes (Other)
  Sender: FDA-Public Use
  Company Number: TH-PFIZER INC-2014191856

PATIENT
  Age: 62 Year
  Sex: Female

DRUGS (3)
  1. METHYLPREDNISOLONE [Suspect]
     Active Substance: METHYLPREDNISOLONE
     Indication: RADICULAR PAIN
     Dosage: 20 MG, SINGLE
     Route: 037
  2. BUPIVACAINE HCL [Suspect]
     Active Substance: BUPIVACAINE HYDROCHLORIDE
     Dosage: 0.5% BUPIVACAINE 7.5 MG
     Route: 037
  3. BUPIVACAINE HCL [Suspect]
     Active Substance: BUPIVACAINE HYDROCHLORIDE
     Indication: RADICULAR PAIN
     Dosage: MIXTURE OF 0.5% BUPIVACAINE 2 ML AND 3% HYPERTONIC SALINE 10 ML
     Route: 037

REACTIONS (4)
  - Dizziness [Recovered/Resolved]
  - Hypoaesthesia [Recovered/Resolved]
  - Incorrect route of drug administration [Recovered/Resolved]
  - Hypotension [Recovered/Resolved]
